FAERS Safety Report 8333349-0 (Version None)
Quarter: 2012Q2

REPORT INFORMATION
  Report Type: 
  Country: None (occurrence: None)
  Receive Date: 20120503
  Receipt Date: 20120430
  Transmission Date: 20120825
  Serious: Yes (Death, Other)
  Sender: FDA-Public Use
  Company Number: US-PFIZER INC-2012006501

PATIENT
  Sex: Male
  Weight: 72.562 kg

DRUGS (2)
  1. TOVIAZ [Suspect]
     Indication: POLLAKIURIA
     Dosage: UNKN, DAILY
     Route: 048
     Dates: start: 20110101, end: 20120107
  2. TAMSULOSIN HYDROCHLORIDE [Concomitant]
     Dosage: UNK

REACTIONS (2)
  - CONSTIPATION [None]
  - DEATH [None]
